FAERS Safety Report 21409775 (Version 1)
Quarter: 2022Q4

REPORT INFORMATION
  Report Type: Spontaneous
  Country: HR (occurrence: None)
  Receive Date: 20221005
  Receipt Date: 20221005
  Transmission Date: 20230112
  Serious: Yes (Other)
  Sender: FDA-Public Use
  Company Number: 2022A330419

PATIENT
  Age: 48 Year
  Sex: Male

DRUGS (3)
  1. SEROQUEL [Suspect]
     Active Substance: QUETIAPINE FUMARATE
     Dosage: 20 TBL X 200 MG
     Route: 048
     Dates: start: 20220816, end: 20220816
  2. ZYPREXA [Suspect]
     Active Substance: OLANZAPINE
     Dosage: NEKOLIKO TABLETA OD 10MG
     Route: 048
     Dates: start: 20220816, end: 20220816
  3. XANAX [Suspect]
     Active Substance: ALPRAZOLAM
     Dosage: 37 TBL X 0.5 MG
     Route: 048
     Dates: start: 20220816, end: 20220816

REACTIONS (2)
  - Coma [Unknown]
  - Overdose [Unknown]

NARRATIVE: CASE EVENT DATE: 20220816
